FAERS Safety Report 12880333 (Version 1)
Quarter: 2016Q4

REPORT INFORMATION
  Report Type: Spontaneous
  Country: US (occurrence: US)
  Receive Date: 20161024
  Receipt Date: 20161024
  Transmission Date: 20170207
  Serious: Yes (Other)
  Sender: FDA-Public Use
  Company Number: None

PATIENT
  Age: 54 Year
  Sex: Female
  Weight: 68.4 kg

DRUGS (1)
  1. CHLORAPREP [Suspect]
     Active Substance: CHLORHEXIDINE GLUCONATE\ISOPROPYL ALCOHOL
     Indication: PREOPERATIVE CARE
     Dosage: ?          OTHER FREQUENCY:ONE;?
     Route: 061
     Dates: start: 20160727, end: 20160727

REACTIONS (4)
  - Blister [None]
  - Skin abrasion [None]
  - Erythema [None]
  - Skin hypopigmentation [None]

NARRATIVE: CASE EVENT DATE: 20160727
